FAERS Safety Report 9582446 (Version 1)
Quarter: 2013Q4

REPORT INFORMATION
  Report Type: Spontaneous
  Country: US (occurrence: US)
  Receive Date: 20131002
  Receipt Date: 20131002
  Transmission Date: 20140711
  Serious: No
  Sender: FDA-Public Use
  Company Number: US-AMGEN-USASP2013040781

PATIENT
  Age: 30 Year
  Sex: Female
  Weight: 56 kg

DRUGS (6)
  1. ENBREL [Suspect]
     Indication: PRODUCT USED FOR UNKNOWN INDICATION
     Dosage: 50 MG, QWK
     Route: 058
     Dates: end: 201305
  2. PLAQUENIL                          /00072602/ [Concomitant]
     Dosage: 200 MG, UNK
  3. AZATHIOPRINE [Concomitant]
     Dosage: 50 MG, UNK
  4. CONCERTA [Concomitant]
     Dosage: 27 MG, UNK
  5. ZOLOFT [Concomitant]
     Dosage: 100 MG, UNK
  6. VITAMIN D3 [Concomitant]
     Dosage: 10000 UNIT, UNK

REACTIONS (1)
  - Drug ineffective [Unknown]
